FAERS Safety Report 9831724 (Version 1)
Quarter: 2014Q1

REPORT INFORMATION
  Report Type: Spontaneous
  Country: HR (occurrence: HR)
  Receive Date: 20140121
  Receipt Date: 20140121
  Transmission Date: 20141002
  Serious: Yes (Other)
  Sender: FDA-Public Use
  Company Number: HR-JNJFOC-20140107590

PATIENT
  Sex: 0

DRUGS (2)
  1. GOLIMUMAB [Suspect]
     Indication: PSORIATIC ARTHROPATHY
     Route: 058
  2. METHOTREXATE [Suspect]
     Indication: PSORIATIC ARTHROPATHY
     Route: 065

REACTIONS (5)
  - Myocardial infarction [Unknown]
  - Acute coronary syndrome [Unknown]
  - Troponin increased [Unknown]
  - Electrocardiogram ST segment elevation [Unknown]
  - Coronary artery occlusion [Unknown]
